FAERS Safety Report 22075831 (Version 1)
Quarter: 2023Q1

REPORT INFORMATION
  Report Type: Spontaneous
  Country: US (occurrence: US)
  Receive Date: 20230308
  Receipt Date: 20230308
  Transmission Date: 20230417
  Serious: No
  Sender: FDA-Public Use
  Company Number: US-TEVA-2023-US-2860062

PATIENT
  Sex: Male

DRUGS (2)
  1. TESTOSTERONE [Suspect]
     Active Substance: TESTOSTERONE
     Indication: Product used for unknown indication
     Dosage: 1 %
     Route: 065
     Dates: start: 2022
  2. TESTOSTERONE [Suspect]
     Active Substance: TESTOSTERONE
     Dosage: 1 %
     Route: 065
     Dates: start: 2022

REACTIONS (4)
  - Libido disorder [Unknown]
  - Product odour abnormal [Unknown]
  - Drug ineffective [Unknown]
  - Product adhesion issue [Unknown]

NARRATIVE: CASE EVENT DATE: 20220101
